FAERS Safety Report 25043122 (Version 1)
Quarter: 2025Q1

REPORT INFORMATION
  Report Type: Spontaneous
  Country: US (occurrence: US)
  Receive Date: 20250305
  Receipt Date: 20250305
  Transmission Date: 20250409
  Serious: Yes (Other)
  Sender: ELI LILLY AND COMPANY
  Company Number: US-ELI_LILLY_AND_COMPANY-US202503002580

PATIENT
  Age: 57 Year
  Sex: Male

DRUGS (3)
  1. GEMCITABINE HYDROCHLORIDE [Suspect]
     Active Substance: GEMCITABINE HYDROCHLORIDE
     Indication: Pancreatic carcinoma metastatic
     Route: 065
  2. LYNPARZA [Concomitant]
     Active Substance: OLAPARIB
     Indication: Product used for unknown indication
     Dates: start: 202409
  3. CISPLATIN [Concomitant]
     Active Substance: CISPLATIN
     Indication: Pancreatic carcinoma metastatic

REACTIONS (1)
  - Malignant neoplasm progression [Unknown]
